FAERS Safety Report 8485426-1 (Version None)
Quarter: 2012Q3

REPORT INFORMATION
  Report Type: 
  Country: None (occurrence: None)
  Receive Date: 20120703
  Receipt Date: 20120629
  Transmission Date: 20120928
  Serious: Yes (Other)
  Sender: FDA-Public Use
  Company Number: PHHY2012FR053207

PATIENT
  Sex: Female

DRUGS (2)
  1. ZOLEDRONOC ACID [Suspect]
     Indication: OSTEOPOROTIC FRACTURE
     Dosage: 5 MG, UNK
     Route: 042
     Dates: start: 20120614
  2. ACETAMINOPHEN [Concomitant]
     Dosage: 4 G, UNK

REACTIONS (22)
  - HYPOAESTHESIA [None]
  - BLOOD PRESSURE INCREASED [None]
  - HYPERHIDROSIS [None]
  - NECK PAIN [None]
  - VOMITING [None]
  - PAIN IN EXTREMITY [None]
  - HEADACHE [None]
  - FATIGUE [None]
  - PLATELET COUNT INCREASED [None]
  - EATING DISORDER SYMPTOM [None]
  - NASOPHARYNGITIS [None]
  - INSOMNIA [None]
  - ARTHRALGIA [None]
  - NAUSEA [None]
  - MYALGIA [None]
  - CHILLS [None]
  - PAIN [None]
  - BACK PAIN [None]
  - C-REACTIVE PROTEIN INCREASED [None]
  - GAMMA-GLUTAMYLTRANSFERASE INCREASED [None]
  - MONOCYTE COUNT INCREASED [None]
  - NIGHT SWEATS [None]
